FAERS Safety Report 22174269 (Version 3)
Quarter: 2023Q2

REPORT INFORMATION
  Report Type: Report from Study
  Country: US (occurrence: US)
  Receive Date: 20230405
  Receipt Date: 20230523
  Transmission Date: 20230722
  Serious: Yes (Hospitalization)
  Sender: FDA-Public Use
  Company Number: US-TAKEDA-2023TUS033286

PATIENT
  Age: 68 Year
  Sex: Female

DRUGS (14)
  1. TEDUGLUTIDE [Suspect]
     Active Substance: TEDUGLUTIDE
     Indication: Short-bowel syndrome
     Dosage: 1 MILLIGRAM, 2/WEEK
     Route: 042
     Dates: start: 20190724, end: 20220803
  2. TEDUGLUTIDE [Suspect]
     Active Substance: TEDUGLUTIDE
     Indication: Short-bowel syndrome
     Dosage: 1 MILLIGRAM, 2/WEEK
     Route: 042
     Dates: start: 20190724, end: 20220803
  3. TEDUGLUTIDE [Suspect]
     Active Substance: TEDUGLUTIDE
     Indication: Short-bowel syndrome
     Dosage: 1 MILLIGRAM, 2/WEEK
     Route: 042
     Dates: start: 20190724, end: 20220803
  4. TEDUGLUTIDE [Suspect]
     Active Substance: TEDUGLUTIDE
     Indication: Short-bowel syndrome
     Dosage: 1 MILLIGRAM, 2/WEEK
     Route: 042
     Dates: start: 20190724, end: 20220803
  5. TEDUGLUTIDE [Suspect]
     Active Substance: TEDUGLUTIDE
     Dosage: 1 MILLIGRAM, 4/WEEK
     Route: 042
     Dates: start: 20220804
  6. TEDUGLUTIDE [Suspect]
     Active Substance: TEDUGLUTIDE
     Dosage: 1 MILLIGRAM, 4/WEEK
     Route: 042
     Dates: start: 20220804
  7. TEDUGLUTIDE [Suspect]
     Active Substance: TEDUGLUTIDE
     Dosage: 1 MILLIGRAM, 4/WEEK
     Route: 042
     Dates: start: 20220804
  8. TEDUGLUTIDE [Suspect]
     Active Substance: TEDUGLUTIDE
     Dosage: 1 MILLIGRAM, 4/WEEK
     Route: 042
     Dates: start: 20220804
  9. MAGNESIUM CARBONATE [Concomitant]
     Active Substance: MAGNESIUM CARBONATE
     Indication: Hypovitaminosis
     Dosage: 500 MILLIGRAM, QD
     Route: 048
     Dates: start: 20220121
  10. MAGNESIUM CARBONATE [Concomitant]
     Active Substance: MAGNESIUM CARBONATE
     Indication: Mineral deficiency
  11. PANCRELIPASE [Concomitant]
     Active Substance: PANCRELIPASE
     Indication: Short-bowel syndrome
     Dosage: 36000 INTERNATIONAL UNIT, BID
     Route: 048
     Dates: start: 20210505
  12. KLOR-CON [Concomitant]
     Active Substance: POTASSIUM CHLORIDE
     Indication: Short-bowel syndrome
     Dosage: 10 MILLIEQUIVALENT, 2/WEEK
     Route: 048
     Dates: start: 20210505
  13. ZINCATE [Concomitant]
     Indication: Hypovitaminosis
     Dosage: 220 MILLIGRAM, QD
     Route: 048
     Dates: start: 20200909
  14. ZINCATE [Concomitant]
     Indication: Mineral deficiency

REACTIONS (2)
  - Haematuria [Recovered/Resolved with Sequelae]
  - Anaemia [Recovered/Resolved with Sequelae]

NARRATIVE: CASE EVENT DATE: 20221026
